FAERS Safety Report 10067469 (Version 2)
Quarter: 2014Q2

REPORT INFORMATION
  Report Type: Spontaneous
  Country: DE (occurrence: DE)
  Receive Date: 20140409
  Receipt Date: 20140409
  Transmission Date: 20141212
  Serious: Yes (Hospitalization, Other)
  Sender: FDA-Public Use
  Company Number: DE-SUN PHARMACEUTICAL INDUSTRIES LTD-2014SUN00121

PATIENT
  Age: 56 Year
  Sex: Female
  Weight: 98 kg

DRUGS (3)
  1. OXALIPLATIN SUN 5 MG/ML POW FOR SOL FOR INFUSION [Suspect]
     Indication: COLON CANCER
     Dosage: UNK
     Route: 065
     Dates: start: 201312
  2. OXALIPLATIN SUN 5 MG/ML POW FOR SOL FOR INFUSION [Suspect]
     Dosage: 170 MG IN 5% GLUCOSE
     Route: 042
     Dates: start: 20140127
  3. AVASTIN [Concomitant]
     Dosage: 490 MG IN 100 ML NACL

REACTIONS (6)
  - Loss of consciousness [Unknown]
  - Hypersensitivity [Unknown]
  - Hyperhidrosis [Unknown]
  - Nausea [Unknown]
  - Chest pain [Unknown]
  - Product substitution issue [Unknown]
